FAERS Safety Report 4775194-9 (Version None)
Quarter: 2005Q3

REPORT INFORMATION
  Report Type: 
  Country: None (occurrence: None)
  Receive Date: 20050921
  Receipt Date: 20050817
  Transmission Date: 20060218
  Serious: Yes (Other)
  Sender: FDA-Public Use
  Company Number: US-MERCK-0508USA03105

PATIENT
  Age: 56 Year
  Sex: Female
  Weight: 60 kg

DRUGS (3)
  1. FOSAMAX [Suspect]
     Indication: OSTEOPOROSIS
     Route: 048
     Dates: start: 20030101
  2. ESTRACE [Concomitant]
     Indication: MENOPAUSE
     Route: 048
  3. NYSTATIN [Concomitant]
     Route: 048

REACTIONS (1)
  - BONE DENSITY DECREASED [None]
